FAERS Safety Report 21888282 (Version 5)
Quarter: 2023Q1

REPORT INFORMATION
  Report Type: Report from Study
  Country: FR (occurrence: None)
  Receive Date: 20230120
  Receipt Date: 20230327
  Transmission Date: 20230418
  Serious: Yes (Hospitalization)
  Sender: FDA-Public Use
  Company Number: FR-ROCHE-3266541

PATIENT
  Age: 53 Year
  Sex: Male
  Weight: 63 kg

DRUGS (9)
  1. ATEZOLIZUMAB [Suspect]
     Active Substance: ATEZOLIZUMAB
     Indication: Bladder transitional cell carcinoma
     Dosage: CUMULATIVE DOSE WAS 8400 MG
     Route: 041
     Dates: start: 20220609, end: 20221011
  2. BCG VACCINE [Suspect]
     Active Substance: BCG VACCINE
     Indication: Transitional cell carcinoma
     Dosage: CUMULATIVE DOSE WAS 450 ML
     Route: 043
     Dates: start: 20220607, end: 20221025
  3. OXYCONTIN [Concomitant]
     Active Substance: OXYCODONE HYDROCHLORIDE
     Indication: Bladder pain
     Route: 048
     Dates: start: 20221111
  4. AMITRIPTYLINE HYDROCHLORIDE [Concomitant]
     Active Substance: AMITRIPTYLINE HYDROCHLORIDE
     Indication: Sleep disorder
     Route: 048
     Dates: start: 20221123
  5. AMITRIPTYLINE HYDROCHLORIDE [Concomitant]
     Active Substance: AMITRIPTYLINE HYDROCHLORIDE
     Route: 048
     Dates: start: 20221125
  6. MIRABEGRON [Concomitant]
     Active Substance: MIRABEGRON
     Indication: Hypertonic bladder
     Dosage: DAILY DOSE-50
     Route: 048
     Dates: start: 20221123
  7. MIRABEGRON [Concomitant]
     Active Substance: MIRABEGRON
     Route: 048
     Dates: start: 202301
  8. HERBALS\SAW PALMETTO [Concomitant]
     Active Substance: HERBALS\SAW PALMETTO
     Indication: Hypertonic bladder
     Route: 048
     Dates: start: 20220603
  9. HERBALS\SAW PALMETTO [Concomitant]
     Active Substance: HERBALS\SAW PALMETTO
     Dosage: DAILY DOSE- 10
     Route: 048
     Dates: start: 202301

REACTIONS (1)
  - Cholangitis [Not Recovered/Not Resolved]

NARRATIVE: CASE EVENT DATE: 20221207
